FAERS Safety Report 15494809 (Version 1)
Quarter: 2018Q4

REPORT INFORMATION
  Report Type: Spontaneous
  Country: US (occurrence: US)
  Receive Date: 20181012
  Receipt Date: 20181012
  Transmission Date: 20190205
  Serious: No
  Sender: FDA-Public Use
  Company Number: US-MAYNE PHARMA-2017MYN001542

PATIENT

DRUGS (2)
  1. FENTANYL. [Suspect]
     Active Substance: FENTANYL
     Indication: PAIN
     Dosage: 150 MCG, QOD
     Route: 062
  2. LYRICA [Concomitant]
     Active Substance: PREGABALIN

REACTIONS (3)
  - Insomnia [Recovering/Resolving]
  - Confusional state [Unknown]
  - Product use issue [Recovered/Resolved]
